FAERS Safety Report 13458222 (Version 2)
Quarter: 2017Q3

REPORT INFORMATION
  Report Type: Report from Study
  Country: FR (occurrence: FR)
  Receive Date: 20170419
  Receipt Date: 20170803
  Transmission Date: 20171127
  Serious: Yes (Hospitalization)
  Sender: FDA-Public Use
  Company Number: FR-PFIZER INC-2017166832

PATIENT
  Age: 18 Year
  Sex: Female
  Weight: 61 kg

DRUGS (2)
  1. MIFEGYNE [Suspect]
     Active Substance: MIFEPRISTONE
     Indication: ABORTION INDUCED
     Dosage: 600 MG, SINGLE
     Route: 048
     Dates: start: 19930327, end: 19930327
  2. MISOPROSTOL. [Suspect]
     Active Substance: MISOPROSTOL
     Indication: ABORTION INDUCED
     Dosage: 600 UG, UNK (400 ?G + 200 ?G)
     Route: 048
     Dates: start: 19930329, end: 19930329

REACTIONS (3)
  - Drug ineffective [Unknown]
  - Metrorrhagia [Recovered/Resolved]
  - Uterine spasm [Recovered/Resolved]

NARRATIVE: CASE EVENT DATE: 19930331
